FAERS Safety Report 8800927 (Version 6)
Quarter: 2013Q4

REPORT INFORMATION
  Report Type: Report from Study
  Country: DE (occurrence: DE)
  Receive Date: 20120921
  Receipt Date: 20131113
  Transmission Date: 20140711
  Serious: Yes (Hospitalization, Other)
  Sender: FDA-Public Use
  Company Number: DE-TEVA-359084GER

PATIENT
  Sex: Male

DRUGS (4)
  1. COPAXONE [Suspect]
     Indication: MULTIPLE SCLEROSIS
     Dosage: 20 MILLIGRAM DAILY;
     Route: 058
     Dates: start: 20120131
  2. MOCLOBEMIDE [Interacting]
     Indication: DEPRESSION
     Dates: end: 2012
  3. PAROXETINE [Concomitant]
     Indication: DEPRESSION
  4. LAMOTRIGINE [Concomitant]
     Indication: DEPRESSION

REACTIONS (3)
  - Depression [Recovering/Resolving]
  - Drug interaction [Recovered/Resolved]
  - Suicidal ideation [Recovering/Resolving]
